FAERS Safety Report 9490206 (Version 2)
Quarter: 2013Q3

REPORT INFORMATION
  Report Type: Spontaneous
  Country: US (occurrence: US)
  Receive Date: 20130830
  Receipt Date: 20130913
  Transmission Date: 20140515
  Serious: Yes (Hospitalization)
  Sender: FDA-Public Use
  Company Number: US-BIOGENIDEC-2013BI079465

PATIENT
  Age: 33 Year
  Sex: Female

DRUGS (7)
  1. TECFIDERA [Suspect]
     Indication: MULTIPLE SCLEROSIS
     Route: 048
     Dates: start: 20130618
  2. TECFIDERA [Suspect]
     Indication: MULTIPLE SCLEROSIS
     Route: 048
     Dates: start: 20130625, end: 20130816
  3. TECFIDERA [Suspect]
     Indication: MULTIPLE SCLEROSIS
     Route: 048
     Dates: start: 201308
  4. WARFARIN [Concomitant]
  5. BUSPIRONE [Concomitant]
  6. DIAZEPAM [Concomitant]
  7. HYDROCODONE/APAP [Concomitant]

REACTIONS (2)
  - Urinary tract infection [Recovered/Resolved]
  - Accidental overdose [Recovered/Resolved]
